FAERS Safety Report 4539942-5 (Version None)
Quarter: 2004Q4

REPORT INFORMATION
  Report Type: 
  Country: None (occurrence: None)
  Receive Date: 20041223
  Receipt Date: 20041210
  Transmission Date: 20050328
  Serious: Yes (Hospitalization)
  Sender: FDA-Public Use
  Company Number: 230024M04CHE

PATIENT
  Age: 71 Year
  Sex: Male

DRUGS (4)
  1. REBIF [Suspect]
     Indication: INFLAMMATION
     Dosage: 22 MCG 3 IN 1 WEEKS, SUBCUTANEOUS
     Route: 058
     Dates: start: 20040901
  2. REBIF [Suspect]
     Indication: SPINAL CORD DISORDER
     Dosage: 22 MCG 3 IN 1 WEEKS, SUBCUTANEOUS
     Route: 058
     Dates: start: 20040901
  3. CELEBREX [Suspect]
     Indication: PAIN IN EXTREMITY
     Dosage: 200 MG, 2 IN 1 DAYS, ORAL
     Route: 048
     Dates: start: 20041101, end: 20041110
  4. NEXIUM [Suspect]
     Indication: GASTRIC ULCER
     Dosage: 22.3 MG, 1 IN 1 DAYS, ORAL
     Route: 048
     Dates: end: 20041110

REACTIONS (5)
  - DYSPNOEA [None]
  - FALL [None]
  - INAPPROPRIATE ANTIDIURETIC HORMONE SECRETION [None]
  - PAIN IN EXTREMITY [None]
  - UPPER RESPIRATORY TRACT CONGESTION [None]
